FAERS Safety Report 7112471-0 (Version None)
Quarter: 2010Q4

REPORT INFORMATION
  Report Type: 
  Country: None (occurrence: None)
  Receive Date: 20101119
  Receipt Date: 20101102
  Transmission Date: 20110411
  Serious: Yes (Other)
  Sender: FDA-Public Use
  Company Number: US-BAYER-201020780NA

PATIENT
  Age: 34 Year
  Sex: Female
  Weight: 66 kg

DRUGS (3)
  1. YAZ [Suspect]
     Indication: OVARIAN CYST
     Route: 048
     Dates: start: 20070501, end: 20071001
  2. YASMIN [Suspect]
     Indication: PRODUCT USED FOR UNKNOWN INDICATION
     Route: 048
  3. ADVIL [Concomitant]

REACTIONS (13)
  - CONVULSION [None]
  - DIZZINESS [None]
  - FALL [None]
  - HALLUCINATION, AUDITORY [None]
  - HEAD INJURY [None]
  - HEMIPARESIS [None]
  - MUSCLE STRAIN [None]
  - PAIN [None]
  - SPEECH DISORDER [None]
  - SYNCOPE [None]
  - THROMBOSIS [None]
  - TREMOR [None]
  - VERTIGO [None]
